FAERS Safety Report 10673104 (Version 6)
Quarter: 2017Q2

REPORT INFORMATION
  Report Type: Spontaneous
  Country: CA (occurrence: CA)
  Receive Date: 20141224
  Receipt Date: 20170419
  Transmission Date: 20170829
  Serious: Yes (Other)
  Sender: FDA-Public Use
  Company Number: CA-ROCHE-1433914

PATIENT
  Age: 50 Year
  Sex: Male

DRUGS (4)
  1. XOLAIR [Suspect]
     Active Substance: OMALIZUMAB
     Indication: ASTHMA
     Route: 058
     Dates: start: 20140415
  2. XOLAIR [Suspect]
     Active Substance: OMALIZUMAB
     Route: 058
     Dates: start: 20170315
  3. XOLAIR [Suspect]
     Active Substance: OMALIZUMAB
     Route: 058
     Dates: start: 20160809
  4. XOLAIR [Suspect]
     Active Substance: OMALIZUMAB
     Route: 058
     Dates: start: 20160831

REACTIONS (14)
  - Feeling abnormal [Recovering/Resolving]
  - Fatigue [Unknown]
  - Malaise [Unknown]
  - Asthma [Unknown]
  - Throat tightness [Recovering/Resolving]
  - Productive cough [Unknown]
  - Muscle strain [Unknown]
  - Sputum discoloured [Unknown]
  - Sinusitis [Unknown]
  - Dysphagia [Unknown]
  - Lung infection [Unknown]
  - Blood pressure increased [Unknown]
  - Viral upper respiratory tract infection [Unknown]
  - Hypersensitivity [Unknown]

NARRATIVE: CASE EVENT DATE: 20140415
